FAERS Safety Report 7364368-9 (Version None)
Quarter: 2011Q1

REPORT INFORMATION
  Report Type: 
  Country: None (occurrence: None)
  Receive Date: 20110321
  Receipt Date: 20110218
  Transmission Date: 20110831
  Serious: No
  Sender: FDA-Public Use
  Company Number: US-ALLERGAN-1102446US

PATIENT
  Sex: Female

DRUGS (1)
  1. ZYMAXID [Suspect]
     Indication: CATARACT OPERATION

REACTIONS (3)
  - PAIN IN EXTREMITY [None]
  - VARICOSE VEIN [None]
  - EYE PAIN [None]
